FAERS Safety Report 8031513-1 (Version None)
Quarter: 2012Q1

REPORT INFORMATION
  Report Type: 
  Country: None (occurrence: None)
  Receive Date: 20120109
  Receipt Date: 20120104
  Transmission Date: 20120608
  Serious: Yes (Hospitalization, Other)
  Sender: FDA-Public Use
  Company Number: CA-ABBOTT-11P-028-0880205-00

PATIENT
  Sex: Female

DRUGS (4)
  1. HUMIRA [Suspect]
     Indication: CROHN'S DISEASE
     Dosage: UNKNOWN
     Route: 058
     Dates: start: 20100910, end: 20110101
  2. HUMIRA [Suspect]
     Route: 058
     Dates: start: 20110101
  3. HUMIRA [Suspect]
     Route: 058
  4. HUMIRA [Suspect]
     Route: 058

REACTIONS (9)
  - ASTHENIA [None]
  - CROHN'S DISEASE [None]
  - WEIGHT DECREASED [None]
  - MALNUTRITION [None]
  - DEHYDRATION [None]
  - PYREXIA [None]
  - TREATMENT FAILURE [None]
  - LUNG INFILTRATION [None]
  - SHORT-BOWEL SYNDROME [None]
